FAERS Safety Report 15193115 (Version 3)
Quarter: 2018Q3

REPORT INFORMATION
  Report Type: Spontaneous
  Country: ES (occurrence: ES)
  Receive Date: 20180725
  Receipt Date: 20180905
  Transmission Date: 20181010
  Serious: Yes (Other)
  Sender: FDA-Public Use
  Company Number: ES-TEVA-2017-ES-835605

PATIENT
  Age: 73 Year
  Sex: Male
  Weight: 65.3 kg

DRUGS (8)
  1. METFORMINA [Concomitant]
     Active Substance: METFORMIN HYDROCHLORIDE
     Indication: PRODUCT USED FOR UNKNOWN INDICATION
     Route: 048
  2. OMEPRAZOL [Suspect]
     Active Substance: OMEPRAZOLE
     Indication: PRODUCT USED FOR UNKNOWN INDICATION
     Dosage: 20 MILLIGRAM DAILY;
     Route: 048
     Dates: start: 2017, end: 20171106
  3. TIAMINA [Concomitant]
     Indication: PRODUCT USED FOR UNKNOWN INDICATION
     Dosage: 300 MILLIGRAM DAILY;
     Route: 048
  4. OLMESARTAN MEDOXOMILO [Concomitant]
     Indication: PRODUCT USED FOR UNKNOWN INDICATION
     Dosage: 20 MILLIGRAM DAILY;
     Route: 048
  5. LEVETIRACETAM. [Concomitant]
     Active Substance: LEVETIRACETAM
     Indication: PRODUCT USED FOR UNKNOWN INDICATION
     Dosage: 750 MILLIGRAM DAILY;
     Route: 048
  6. CILOSTAZOL. [Suspect]
     Active Substance: CILOSTAZOL
     Indication: PRODUCT USED FOR UNKNOWN INDICATION
     Route: 048
  7. REPAGLINIDA [Concomitant]
     Active Substance: REPAGLINIDE
     Indication: PRODUCT USED FOR UNKNOWN INDICATION
     Route: 048
  8. SILODOSINA [Concomitant]
     Indication: PRODUCT USED FOR UNKNOWN INDICATION
     Route: 048

REACTIONS (1)
  - Hypomagnesaemia [Recovered/Resolved]

NARRATIVE: CASE EVENT DATE: 20171106
